FAERS Safety Report 19382811 (Version 1)
Quarter: 2021Q2

REPORT INFORMATION
  Report Type: Spontaneous
  Country: AU (occurrence: AU)
  Receive Date: 20210607
  Receipt Date: 20210607
  Transmission Date: 20210717
  Serious: Yes (Other)
  Sender: FDA-Public Use
  Company Number: AU-MYLANLABS-2021M1033372

PATIENT
  Sex: Male

DRUGS (2)
  1. CLOZAPINE. [Suspect]
     Active Substance: CLOZAPINE
     Indication: SCHIZOPHRENIA
     Route: 065
  2. CLONIDINE. [Concomitant]
     Active Substance: CLONIDINE
     Indication: SALIVARY HYPERSECRETION
     Dosage: 50 MICROGRAM
     Route: 065

REACTIONS (2)
  - Salivary hypersecretion [Unknown]
  - Choking [Unknown]
